FAERS Safety Report 5122806-6 (Version None)
Quarter: 2006Q4

REPORT INFORMATION
  Report Type: 
  Country: None (occurrence: None)
  Receive Date: 20061009
  Receipt Date: 20061004
  Transmission Date: 20070319
  Serious: Yes (Other)
  Sender: FDA-Public Use
  Company Number: AU-BRISTOL-MYERS SQUIBB COMPANY-13529839

PATIENT
  Sex: Female

DRUGS (4)
  1. KARVEA [Suspect]
  2. ARAVA [Suspect]
  3. ACTONEL [Concomitant]
  4. PREDNISONE [Concomitant]

REACTIONS (2)
  - ADVERSE DRUG REACTION [None]
  - GRAND MAL CONVULSION [None]
